FAERS Safety Report 6974636-8 (Version None)
Quarter: 2010Q3

REPORT INFORMATION
  Report Type: 
  Country: None (occurrence: None)
  Receive Date: 20100909
  Receipt Date: 20100909
  Transmission Date: 20110219
  Serious: Yes (Life-Threatening, Hospitalization)
  Sender: FDA-Public Use
  Company Number: None

PATIENT
  Age: 86 Year
  Sex: Female
  Weight: 63.9572 kg

DRUGS (1)
  1. ZYVOX [Suspect]
     Indication: PNEUMONIA STAPHYLOCOCCAL
     Dosage: 600MG BID PO (APPROX. 3 WEEKS)
     Route: 048

REACTIONS (4)
  - APLASTIC ANAEMIA [None]
  - CONTUSION [None]
  - HYPOTENSION [None]
  - RENAL FAILURE ACUTE [None]
